FAERS Safety Report 21511163 (Version 1)
Quarter: 2022Q4

REPORT INFORMATION
  Report Type: Spontaneous
  Country: US (occurrence: US)
  Receive Date: 20221027
  Receipt Date: 20221027
  Transmission Date: 20230112
  Serious: Yes (Life-Threatening, Hospitalization, Other)
  Sender: FDA-Public Use
  Company Number: US-drreddys-SPO/USA/22/0156205

PATIENT
  Age: 59 Year
  Sex: Male

DRUGS (1)
  1. AMIODARONE HYDROCHLORIDE [Suspect]
     Active Substance: AMIODARONE HYDROCHLORIDE
     Indication: Ventricular tachycardia
     Dates: start: 2017

REACTIONS (4)
  - Arrhythmic storm [Recovered/Resolved]
  - Thyrotoxic crisis [Recovered/Resolved]
  - Cardiac arrest [Recovered/Resolved]
  - Hyperthyroidism [Recovered/Resolved]
